FAERS Safety Report 21041655 (Version 1)
Quarter: 2022Q3

REPORT INFORMATION
  Report Type: Spontaneous
  Country: US (occurrence: US)
  Receive Date: 20220705
  Receipt Date: 20220705
  Transmission Date: 20221027
  Serious: Yes (Other)
  Sender: FDA-Public Use
  Company Number: US-SUN PHARMACEUTICAL INDUSTRIES LTD-2022R1-343081

PATIENT
  Age: 55 Year
  Sex: Female

DRUGS (5)
  1. DOXORUBICIN [Suspect]
     Active Substance: DOXORUBICIN
     Indication: Inflammatory carcinoma of breast stage III
     Dosage: UNK,60MG/M2
     Route: 065
  2. CARBOPLATIN [Suspect]
     Active Substance: CARBOPLATIN
     Indication: Inflammatory carcinoma of breast stage III
     Dosage: UNK,EVERY 3 WEEKS
     Route: 065
  3. PACLITAXEL [Suspect]
     Active Substance: PACLITAXEL
     Indication: Inflammatory carcinoma of breast stage III
     Dosage: UNK,80MG/M2 FOR 12 WEEKS
     Route: 065
  4. CYCLOPHOSPHAMIDE [Suspect]
     Active Substance: CYCLOPHOSPHAMIDE
     Indication: Inflammatory carcinoma of breast stage III
     Dosage: UNK,600MG/M2
     Route: 065
  5. PEMBROLIZUMAB [Suspect]
     Active Substance: PEMBROLIZUMAB
     Indication: Inflammatory carcinoma of the breast
     Dosage: UNK,200MG EVERY 3 WEEKS 4 CYCLES
     Route: 065

REACTIONS (3)
  - Lymph node fibrosis [Unknown]
  - Alopecia [Unknown]
  - Fatigue [Unknown]
